FAERS Safety Report 5465121-3 (Version None)
Quarter: 2007Q3

REPORT INFORMATION
  Report Type: 
  Country: None (occurrence: None)
  Receive Date: 20070820
  Receipt Date: 20070619
  Transmission Date: 20080115
  Serious: No
  Sender: FDA-Public Use
  Company Number: TPA2007A01432

PATIENT
  Age: 72 Year
  Sex: Female
  Weight: 57.6068 kg

DRUGS (1)
  1. ROZEREM [Suspect]
     Indication: INSOMNIA
     Dosage: PER ORAL
     Route: 048

REACTIONS (1)
  - DRUG INEFFECTIVE [None]
